FAERS Safety Report 6120683-8 (Version None)
Quarter: 2009Q1

REPORT INFORMATION
  Report Type: 
  Country: None (occurrence: None)
  Receive Date: 20090312
  Receipt Date: 20090312
  Transmission Date: 20090719
  Serious: No
  Sender: FDA-Public Use
  Company Number: None

PATIENT
  Age: 5 Year
  Sex: Male
  Weight: 16.3295 kg

DRUGS (2)
  1. FOCALIN XR [Suspect]
     Indication: ATTENTION DEFICIT/HYPERACTIVITY DISORDER
     Dosage: 10MG CAP AM PO
     Route: 048
     Dates: start: 20090220, end: 20090226
  2. RISPERDAL [Suspect]
     Indication: ABNORMAL BEHAVIOUR
     Dosage: 1 CAP BEDTIME PO
     Route: 048
     Dates: start: 20080826, end: 20090309

REACTIONS (6)
  - FEAR [None]
  - FORMICATION [None]
  - HALLUCINATION, VISUAL [None]
  - MIDDLE INSOMNIA [None]
  - SCREAMING [None]
  - TREMOR [None]
